FAERS Safety Report 16872197 (Version 1)
Quarter: 2019Q4

REPORT INFORMATION
  Report Type: Spontaneous
  Country: CN (occurrence: CN)
  Receive Date: 20191001
  Receipt Date: 20191001
  Transmission Date: 20200122
  Serious: Yes (Hospitalization)
  Sender: FDA-Public Use
  Company Number: CN-ROCHE-2413402

PATIENT
  Age: 78 Year
  Sex: Male
  Weight: 60 kg

DRUGS (2)
  1. SODIUM CHLORIDE. [Concomitant]
     Active Substance: SODIUM CHLORIDE
     Route: 065
     Dates: start: 20190801, end: 20190801
  2. MABTHERA [Suspect]
     Active Substance: RITUXIMAB
     Indication: DIFFUSE LARGE B-CELL LYMPHOMA
     Route: 041
     Dates: start: 20190801, end: 20190801

REACTIONS (8)
  - Chest discomfort [Recovered/Resolved]
  - Pyrexia [Recovering/Resolving]
  - Palpitations [Recovering/Resolving]
  - Temperature intolerance [Recovering/Resolving]
  - Tachypnoea [Recovered/Resolved]
  - Cough [Recovering/Resolving]
  - Chills [Recovering/Resolving]
  - Flushing [Unknown]

NARRATIVE: CASE EVENT DATE: 20190801
